FAERS Safety Report 9869295 (Version 2)
Quarter: 2015Q1

REPORT INFORMATION
  Report Type: Report from Study
  Country: DE (occurrence: DE)
  Receive Date: 20140205
  Receipt Date: 20150130
  Transmission Date: 20150721
  Serious: Yes (Hospitalization)
  Sender: FDA-Public Use
  Company Number: DE-ROCHE-1339849

PATIENT
  Age: 61 Year
  Sex: Female
  Weight: 71 kg

DRUGS (7)
  1. PERTUZUMAB [Suspect]
     Active Substance: PERTUZUMAB
     Indication: OVARIAN CANCER
     Dosage: LOADING DOSE
     Route: 042
     Dates: start: 20131219, end: 20131219
  2. METOHEXAL (GERMANY) [Concomitant]
  3. RAMIPRIL. [Concomitant]
     Active Substance: RAMIPRIL
     Route: 065
     Dates: start: 2006
  4. GEMCITABINE [Suspect]
     Active Substance: GEMCITABINE\GEMCITABINE HYDROCHLORIDE
     Indication: OVARIAN CANCER
     Dosage: LAST DOSE TAKEN PRIOR TO SAE 08/JAN/2014
     Route: 042
     Dates: start: 20131219
  5. METFORMIN [Concomitant]
     Active Substance: METFORMIN HYDROCHLORIDE
     Route: 065
     Dates: start: 2004
  6. OMEPRAZOL [Concomitant]
     Active Substance: OMEPRAZOLE
     Route: 065
     Dates: start: 2007
  7. PERTUZUMAB [Suspect]
     Active Substance: PERTUZUMAB
     Dosage: MAINTENANCE DOSE, LAST DOSE (420) TAKEN PRIOR TO SAE 08/JAN/2014
     Route: 042

REACTIONS (1)
  - Angina pectoris [Recovered/Resolved]

NARRATIVE: CASE EVENT DATE: 20140116
